FAERS Safety Report 18493100 (Version 3)
Quarter: 2020Q4

REPORT INFORMATION
  Report Type: Report from Study
  Country: US (occurrence: US)
  Receive Date: 20201111
  Receipt Date: 20201221
  Transmission Date: 20210114
  Serious: Yes (Life-Threatening, Hospitalization, Other)
  Sender: FDA-Public Use
  Company Number: US-GILEAD-2020-0502456

PATIENT
  Age: 14 Year
  Sex: Female
  Weight: 110.2 kg

DRUGS (59)
  1. GAMMAGARD [Suspect]
     Active Substance: HUMAN IMMUNOGLOBULIN G
     Indication: PYREXIA
     Route: 042
     Dates: start: 20201106
  2. PROPOFOL. [Suspect]
     Active Substance: PROPOFOL
     Indication: PRODUCT USED FOR UNKNOWN INDICATION
     Route: 065
  3. AZITHROMYCIN ANHYDROUS. [Concomitant]
     Active Substance: AZITHROMYCIN ANHYDROUS
     Indication: COVID-19
     Route: 042
     Dates: start: 20201027, end: 20201027
  4. GASTROVIEW [Concomitant]
     Indication: COVID-19
     Route: 050
     Dates: start: 20201102, end: 20201102
  5. DULCOLAX (BISACODYL) [Concomitant]
     Active Substance: BISACODYL
     Indication: CONSTIPATION
     Route: 054
     Dates: start: 20201027
  6. HEPARIN [Concomitant]
     Active Substance: HEPARIN SODIUM
     Indication: ANTICOAGULANT THERAPY
     Dosage: 2 UNIT/1 ML NS 500 ML BAG 1000 UNITS
     Route: 042
     Dates: start: 20201030, end: 20201116
  7. NOREPINEPHRINE. [Suspect]
     Active Substance: NOREPINEPHRINE
     Indication: PROPHYLAXIS
     Dosage: UNK
     Route: 042
     Dates: start: 20201030, end: 20201120
  8. CALCIUM CHLORIDE. [Concomitant]
     Active Substance: CALCIUM CHLORIDE
     Indication: MINERAL SUPPLEMENTATION
     Route: 042
     Dates: start: 20201030, end: 20201030
  9. CALCIUM CHLORIDE. [Concomitant]
     Active Substance: CALCIUM CHLORIDE
     Indication: BLOOD CALCIUM DECREASED
  10. FAMOTIDINE. [Concomitant]
     Active Substance: FAMOTIDINE
     Indication: GASTROOESOPHAGEAL REFLUX PROPHYLAXIS
     Dosage: UNK
     Route: 042
     Dates: start: 20201027
  11. LIDOCAINE. [Concomitant]
     Active Substance: LIDOCAINE
     Dosage: UNK
     Route: 023
     Dates: start: 20201027, end: 20201027
  12. REMDESIVIR. [Suspect]
     Active Substance: REMDESIVIR
     Dosage: 200 MG, ONCE
     Route: 042
     Dates: start: 20201027, end: 20201027
  13. ACETAMINOPHEN. [Concomitant]
     Active Substance: ACETAMINOPHEN
     Indication: COVID-19
     Route: 048
     Dates: start: 20201027
  14. ACETAMINOPHEN. [Concomitant]
     Active Substance: ACETAMINOPHEN
     Route: 042
     Dates: start: 20201028, end: 20201101
  15. AZITHROMYCIN ANHYDROUS. [Concomitant]
     Active Substance: AZITHROMYCIN ANHYDROUS
     Indication: INFECTION PROPHYLAXIS
     Route: 042
     Dates: start: 20201028, end: 20201028
  16. NORMAL SALINE [Concomitant]
     Active Substance: SODIUM CHLORIDE
     Dosage: 250 ML
     Route: 042
     Dates: start: 20201030, end: 20201104
  17. DEXMEDETOMIDINE. [Concomitant]
     Active Substance: DEXMEDETOMIDINE
     Dosage: UNK
     Route: 042
     Dates: start: 20201027, end: 20201028
  18. ENOXAPARIN [Concomitant]
     Active Substance: ENOXAPARIN
     Route: 058
     Dates: start: 20201027
  19. MICAFUNGIN. [Suspect]
     Active Substance: MICAFUNGIN SODIUM
     Indication: PYREXIA
     Route: 042
     Dates: start: 20201105
  20. MEROPENEM. [Suspect]
     Active Substance: MEROPENEM
     Indication: PYREXIA
     Route: 042
     Dates: start: 20201106
  21. VANCOMYCIN [Suspect]
     Active Substance: VANCOMYCIN
     Indication: PRODUCT USED FOR UNKNOWN INDICATION
     Route: 065
  22. DEXAMETHASONE. [Concomitant]
     Active Substance: DEXAMETHASONE
     Indication: COVID-19
     Dosage: 6 MG
     Route: 042
     Dates: start: 20201027, end: 20201105
  23. KCL [Concomitant]
     Active Substance: POTASSIUM CHLORIDE
     Dosage: UNK
     Route: 042
     Dates: start: 20201027
  24. FAMOTIDINE. [Concomitant]
     Active Substance: FAMOTIDINE
     Dosage: UNK
     Route: 042
     Dates: start: 20201106, end: 20201110
  25. INSULIN REGULAR BEEF [Concomitant]
     Indication: HYPERGLYCAEMIA
     Dosage: 250 UNITS
     Route: 042
     Dates: start: 20201105, end: 20201110
  26. SODIUM PHOSPHATE [Concomitant]
     Active Substance: SODIUM PHOSPHATE
     Indication: BLOOD PHOSPHORUS DECREASED
     Route: 042
     Dates: start: 20201106, end: 20201106
  27. DEXTROSE IN WATER [Concomitant]
     Active Substance: DEXTROSE\WATER
     Indication: PROPHYLAXIS
     Dosage: UNK
     Route: 042
     Dates: start: 20201105, end: 20201110
  28. FENTANYL. [Suspect]
     Active Substance: FENTANYL
     Indication: PAIN PROPHYLAXIS
     Dosage: 2750 UG
     Route: 042
     Dates: start: 20201030, end: 20201120
  29. MICAFUNGIN. [Suspect]
     Active Substance: MICAFUNGIN SODIUM
     Indication: COVID-19 PNEUMONIA
     Route: 042
     Dates: start: 20201105, end: 20201111
  30. ACETAMINOPHEN. [Concomitant]
     Active Substance: ACETAMINOPHEN
     Indication: PYREXIA
     Route: 042
     Dates: start: 20201028
  31. AZITHROMYCIN ANHYDROUS. [Concomitant]
     Active Substance: AZITHROMYCIN ANHYDROUS
     Indication: COVID-19 PNEUMONIA
  32. MIDAZOLAM. [Concomitant]
     Active Substance: MIDAZOLAM
     Indication: ANXIETY
     Dosage: UNK
     Route: 042
     Dates: start: 20201027, end: 20201031
  33. MIDAZOLAM. [Concomitant]
     Active Substance: MIDAZOLAM
     Indication: SEDATION
     Dosage: UNK
     Route: 042
     Dates: start: 20201030, end: 20201119
  34. NORMAL SALINE [Concomitant]
     Active Substance: SODIUM CHLORIDE
     Dosage: UNK
     Route: 042
     Dates: start: 20201027
  35. NORMAL SALINE [Concomitant]
     Active Substance: SODIUM CHLORIDE
     Dosage: UNK
     Route: 042
     Dates: start: 20201027, end: 20201030
  36. NORMAL SALINE [Concomitant]
     Active Substance: SODIUM CHLORIDE
     Dosage: UNK
     Route: 042
     Dates: start: 20201030, end: 20201116
  37. DEXMEDETOMIDINE. [Concomitant]
     Active Substance: DEXMEDETOMIDINE
     Indication: RESPIRATORY DISTRESS
     Dosage: 3000 UG
     Route: 042
     Dates: start: 20201028
  38. DEXMEDETOMIDINE. [Concomitant]
     Active Substance: DEXMEDETOMIDINE
     Dosage: UNK
     Route: 042
     Dates: start: 20201030, end: 20201031
  39. SENNA [SENNOSIDE A+B] [Concomitant]
     Active Substance: SENNOSIDES A AND B
     Indication: CONSTIPATION
     Route: 048
     Dates: start: 20201027
  40. NICARDIPINE [NICARDIPINE HYDROCHLORIDE] [Concomitant]
     Active Substance: NICARDIPINE HYDROCHLORIDE
     Indication: HYPERTENSION
     Dosage: 125 MG
     Route: 042
     Dates: start: 20201030, end: 20201116
  41. MAGNESIUM SULFATE. [Concomitant]
     Active Substance: MAGNESIUM SULFATE
     Indication: BLOOD MAGNESIUM DECREASED
     Route: 042
     Dates: start: 20201106, end: 20201110
  42. CEFEPIME [Suspect]
     Active Substance: CEFEPIME HYDROCHLORIDE
     Indication: PRODUCT USED FOR UNKNOWN INDICATION
     Route: 065
  43. ALBUTEROL HFA [Concomitant]
     Active Substance: ALBUTEROL SULFATE
     Indication: COVID-19
     Route: 050
     Dates: start: 20201030
  44. POTASSIUM CHLORIDE. [Concomitant]
     Active Substance: POTASSIUM CHLORIDE
     Indication: BLOOD POTASSIUM DECREASED
     Dosage: UNK
     Route: 042
     Dates: start: 20201030
  45. D5RL [Concomitant]
     Indication: FLUID REPLACEMENT
     Route: 042
     Dates: start: 20201030, end: 20201103
  46. DIFLUCAN [Suspect]
     Active Substance: FLUCONAZOLE
     Indication: PYREXIA
     Route: 042
     Dates: start: 20201105, end: 20201105
  47. SODIUM CHLORIDE. [Suspect]
     Active Substance: SODIUM CHLORIDE
     Indication: PRODUCT USED FOR UNKNOWN INDICATION
     Dosage: UNK
     Route: 065
     Dates: start: 20201030, end: 20201123
  48. NALOXONE [Suspect]
     Active Substance: NALOXONE
     Indication: PROPHYLAXIS
     Dosage: 2 MG
     Route: 042
     Dates: start: 20201030, end: 20201104
  49. NORMAL SALINE [Concomitant]
     Active Substance: SODIUM CHLORIDE
     Dosage: 500 ML
     Route: 042
     Dates: start: 20201030, end: 20201116
  50. MOTRIN [Concomitant]
     Active Substance: IBUPROFEN
     Indication: COVID-19
     Route: 048
     Dates: start: 20201027, end: 20201107
  51. CEFTRIAXONE. [Concomitant]
     Active Substance: CEFTRIAXONE
     Indication: COVID-19 PNEUMONIA
  52. D5RL [Concomitant]
     Indication: SUPPLEMENTATION THERAPY
  53. DEXTROSE SODIUM CHLORIDE [Concomitant]
     Dosage: UNK
     Route: 042
     Dates: start: 20201027, end: 20201030
  54. REMDESIVIR. [Suspect]
     Active Substance: REMDESIVIR
     Indication: COVID-19
     Dosage: 100 MG, QD
     Route: 042
     Dates: start: 20201028, end: 20201105
  55. OCULAR LUBRICANT [HYPROMELLOSE] [Suspect]
     Active Substance: HYPROMELLOSES
     Indication: PRODUCT USED FOR UNKNOWN INDICATION
     Route: 065
  56. ROCURONIUM [Suspect]
     Active Substance: ROCURONIUM BROMIDE
     Indication: PRODUCT USED FOR UNKNOWN INDICATION
     Route: 065
  57. FAMOTIDINE. [Concomitant]
     Active Substance: FAMOTIDINE
     Dosage: UNK
     Route: 050
     Dates: start: 20201027, end: 20201106
  58. CEFTRIAXONE. [Concomitant]
     Active Substance: CEFTRIAXONE
     Indication: COVID-19
     Route: 042
     Dates: start: 20201027, end: 20201029
  59. POTASSIUM CHLORIDE. [Concomitant]
     Active Substance: POTASSIUM CHLORIDE
     Dosage: 20 MEQ
     Route: 042
     Dates: start: 20201030, end: 20201103

REACTIONS (4)
  - Acute kidney injury [Recovered/Resolved]
  - Pyrexia [Recovered/Resolved]
  - Respiratory distress [Not Recovered/Not Resolved]
  - Acute kidney injury [Recovered/Resolved]

NARRATIVE: CASE EVENT DATE: 20201030
